FAERS Safety Report 11697802 (Version 1)
Quarter: 2015Q4

REPORT INFORMATION
  Report Type: Spontaneous
  Country: US (occurrence: US)
  Receive Date: 20151104
  Receipt Date: 20151104
  Transmission Date: 20160304
  Serious: No
  Sender: FDA-Public Use
  Company Number: US-ELI_LILLY_AND_COMPANY-US201012001335

PATIENT
  Age: 67 Year
  Sex: Female

DRUGS (3)
  1. FORTEO [Suspect]
     Active Substance: TERIPARATIDE
     Indication: PARATHYROID DISORDER
     Dosage: 20 UG, DAILY (1/D)
     Route: 065
     Dates: start: 2006
  2. ROCALTROL [Concomitant]
     Active Substance: CALCITRIOL
  3. CALTRATE /00108001/ [Concomitant]

REACTIONS (2)
  - Calcium metabolism disorder [Unknown]
  - Off label use [Unknown]
